FAERS Safety Report 9197076 (Version 2)
Quarter: 2013Q2

REPORT INFORMATION
  Report Type: Spontaneous
  Country: US (occurrence: US)
  Receive Date: 20130328
  Receipt Date: 20130520
  Transmission Date: 20140414
  Serious: No
  Sender: FDA-Public Use
  Company Number: US-PFIZER INC-2013097549

PATIENT
  Age: 64 Year
  Sex: Male

DRUGS (18)
  1. INLYTA [Suspect]
     Indication: RENAL CELL CARCINOMA
     Dosage: 7 MG, 2X/DAY
     Route: 048
  2. INLYTA [Suspect]
     Dosage: 5 MG, UNK
     Route: 048
     Dates: start: 20130308
  3. AMLODIPINE BESILATE [Concomitant]
     Dosage: 10 MG, 1X/DAY
     Route: 048
  4. LABETALOL HYDROCHLORIDE [Concomitant]
     Dosage: 200 MG TABLET TAKE 1/2 PO BID
     Route: 048
  5. LEVOTHYROXINE SODIUM [Concomitant]
     Dosage: UNK
  6. MIRTAZAPINE [Concomitant]
     Dosage: 15 MG, QHS
     Route: 048
  7. PANTOPRAZOLE SODIUM [Concomitant]
     Dosage: UNK
  8. SIMVASTATIN [Concomitant]
     Dosage: 40 MG, QPM
     Route: 048
  9. ATIVAN [Concomitant]
     Indication: ANXIETY
     Dosage: 1-2 PO Q8H PRN
  10. AXITINIB [Concomitant]
     Dosage: 5 MG, (5 MG TABLET TAKE 1) (Q12H, TO BE COMBINED WITH 2, 1 MG TABLETS FOR A TOTAL OF 7MG Q12H)
     Route: 048
  11. AXITINIB [Concomitant]
     Dosage: 2 MG (1 MG TABLET TAKE 2) PO Q12H, TO BE COMBINED WITH 5MG TABLET FOR A TOTAL OF 7MG Q12H
  12. CYMBALTA [Concomitant]
     Dosage: 60 MG, 1X/DAY
     Route: 048
  13. MAGNESIUM OXIDE [Concomitant]
     Dosage: 400 MG, 1X/DAY
     Route: 048
  14. METHYLPHENIDATE - SLOW RELEASE [Concomitant]
     Dosage: 20 MG, 1X/DAY
     Route: 048
  15. PRISTIQ [Concomitant]
     Dosage: 50 MG, 1X/DAY
     Route: 048
  16. SODIUM POLYSTYRENE SULFONATE [Concomitant]
     Dosage: 15G/60ML ORAL SUSP TAKE 60 ML PO XL, 6OML=4TBSP
     Route: 048
  17. VOLTAREN [Concomitant]
     Dosage: 2 G, 4X/DAY
     Route: 061
  18. SYNTHROID [Concomitant]
     Dosage: 137 UG, 1X/DAY
     Route: 048

REACTIONS (1)
  - Fatigue [Recovered/Resolved]
